FAERS Safety Report 9405586 (Version 2)
Quarter: 2013Q3

REPORT INFORMATION
  Report Type: Spontaneous
  Country: US (occurrence: US)
  Receive Date: 20130717
  Receipt Date: 20130904
  Transmission Date: 20140515
  Serious: Yes (Other)
  Sender: FDA-Public Use
  Company Number: US-PFIZER INC-2013209296

PATIENT
  Sex: Female
  Weight: 22.68 kg

DRUGS (2)
  1. EFFEXOR XR [Suspect]
     Indication: BREAST CANCER FEMALE
     Dosage: 150 MG, UNK
     Route: 048
  2. EFFEXOR XR [Suspect]
     Dosage: 300 MG, A DAY
     Route: 048

REACTIONS (25)
  - Haemorrhage [Unknown]
  - Gastrooesophageal reflux disease [Unknown]
  - Nasopharyngitis [Unknown]
  - Cataract [Unknown]
  - Memory impairment [Unknown]
  - Depersonalisation [Unknown]
  - Plantar fasciitis [Unknown]
  - Overweight [Unknown]
  - Hypertrichosis [Unknown]
  - Arthritis [Unknown]
  - Asthenia [Unknown]
  - Acne [Unknown]
  - Abnormal dreams [Unknown]
  - Increased appetite [Unknown]
  - Libido decreased [Unknown]
  - Vulvovaginal dryness [Unknown]
  - Hyperhidrosis [Unknown]
  - Hot flush [Unknown]
  - Onychoclasis [Unknown]
  - Dry mouth [Unknown]
  - Feeling abnormal [Unknown]
  - Off label use [Not Recovered/Not Resolved]
  - Tinnitus [Unknown]
  - Pruritus [Unknown]
  - Stress [Unknown]
